FAERS Safety Report 24639710 (Version 1)
Quarter: 2024Q4

REPORT INFORMATION
  Report Type: Spontaneous
  Country: CN (occurrence: CN)
  Receive Date: 20241119
  Receipt Date: 20241119
  Transmission Date: 20250115
  Serious: Yes (Other)
  Sender: NOVO NORDISK
  Company Number: None

PATIENT
  Age: 20 Year
  Sex: Female
  Weight: 50 kg

DRUGS (1)
  1. OZEMPIC [Suspect]
     Active Substance: SEMAGLUTIDE
     Indication: Diabetes mellitus
     Dosage: 0.25 MG, QW
     Route: 058
     Dates: start: 20241021, end: 20241021

REACTIONS (4)
  - Asthenia [Recovering/Resolving]
  - Hyperhidrosis [Unknown]
  - Vomiting [Recovering/Resolving]
  - Nausea [Unknown]

NARRATIVE: CASE EVENT DATE: 20241022
